FAERS Safety Report 12579061 (Version 1)
Quarter: 2016Q3

REPORT INFORMATION
  Report Type: Report from Study
  Country: US (occurrence: US)
  Receive Date: 20160721
  Receipt Date: 20160721
  Transmission Date: 20161109
  Serious: Yes (Hospitalization, Other)
  Sender: FDA-Public Use
  Company Number: US-ROCHE-1063181

PATIENT
  Age: 60 Year
  Sex: Male
  Weight: 75.7 kg

DRUGS (3)
  1. RO 4929097 (GAMMA SECRETASE INHIBITOR) [Suspect]
     Active Substance: INVESTIGATIONAL PRODUCT
     Route: 048
     Dates: start: 20111201
  2. VISMODEGIB [Suspect]
     Active Substance: VISMODEGIB
     Indication: SOFT TISSUE NEOPLASM
     Dosage: TOTAL DOSE ADMINISTERED WAS 2250 MG.
     Route: 048
     Dates: start: 20111201, end: 20120107
  3. RO 4929097 (GAMMA SECRETASE INHIBITOR) [Suspect]
     Active Substance: INVESTIGATIONAL PRODUCT
     Indication: SOFT TISSUE NEOPLASM
     Dosage: TOTAL DOSE ADMINISTERED WAS 255 MG.
     Route: 048
     Dates: start: 20111201, end: 20120107

REACTIONS (13)
  - Decreased appetite [None]
  - Anaemia [None]
  - Cough [None]
  - Blood alkaline phosphatase increased [None]
  - Stomatitis [None]
  - Hyperglycaemia [None]
  - Headache [None]
  - Hypophosphataemia [Unknown]
  - Hypoalbuminaemia [None]
  - Vomiting [Not Recovered/Not Resolved]
  - Nausea [Not Recovered/Not Resolved]
  - Fatigue [None]
  - Back pain [None]

NARRATIVE: CASE EVENT DATE: 20120106
